FAERS Safety Report 23702747 (Version 2)
Quarter: 2024Q2

REPORT INFORMATION
  Report Type: Spontaneous
  Country: US (occurrence: US)
  Receive Date: 20240403
  Receipt Date: 20240606
  Transmission Date: 20240715
  Serious: Yes (Hospitalization)
  Sender: FDA-Public Use
  Company Number: US-SA-SAC20240401000160

PATIENT
  Sex: Female
  Weight: 59.87 kg

DRUGS (36)
  1. DUPIXENT [Suspect]
     Active Substance: DUPILUMAB
     Indication: Asthma
     Dosage: 300 MG, QOW
     Route: 058
  2. ONDANSETRON HYDROCHLORIDE [Concomitant]
     Active Substance: ONDANSETRON HYDROCHLORIDE
     Dosage: UNK
  3. TRAMADOL HYDROCHLORIDE [Concomitant]
     Active Substance: TRAMADOL HYDROCHLORIDE
  4. PROGESTERONE [Concomitant]
     Active Substance: PROGESTERONE
  5. ESTRADIOL [Concomitant]
     Active Substance: ESTRADIOL
  6. METRONIDAZOLE [Concomitant]
     Active Substance: METRONIDAZOLE
  7. ESTRIOL [Concomitant]
     Active Substance: ESTRIOL
  8. RANITIDINE HYDROCHLORIDE [Concomitant]
     Active Substance: RANITIDINE HYDROCHLORIDE
  9. FLUOXETINE HYDROCHLORIDE [Concomitant]
     Active Substance: FLUOXETINE HYDROCHLORIDE
  10. ELIQUIS [Concomitant]
     Active Substance: APIXABAN
  11. ZOLPIDEM TARTRATE [Concomitant]
     Active Substance: ZOLPIDEM TARTRATE
  12. SUMATRIPTAN SUCCINATE [Concomitant]
     Active Substance: SUMATRIPTAN SUCCINATE
  13. METOCLOPRAMIDE HYDROCHLORIDE [Concomitant]
     Active Substance: METOCLOPRAMIDE HYDROCHLORIDE
  14. LEVALBUTEROL [Concomitant]
     Active Substance: LEVALBUTEROL
  15. HYDROXYZINE HYDROCHLORIDE [Concomitant]
     Active Substance: HYDROXYZINE HYDROCHLORIDE
  16. ESZOPICLONE [Concomitant]
     Active Substance: ESZOPICLONE
  17. POTASSIUM CITRATE CITRIC ACID [Concomitant]
  18. LACTULOSE [Concomitant]
     Active Substance: LACTULOSE
  19. DICYCLOMINE HYDROCHLORIDE [Concomitant]
     Active Substance: DICYCLOMINE HYDROCHLORIDE
  20. CYANOCOBALAMIN [Concomitant]
     Active Substance: CYANOCOBALAMIN
  21. IMITREX [Concomitant]
     Active Substance: SUMATRIPTAN SUCCINATE
  22. BREO ELLIPTA [Concomitant]
     Active Substance: FLUTICASONE FUROATE\VILANTEROL TRIFENATATE
  23. GABAPENTIN [Concomitant]
     Active Substance: GABAPENTIN
  24. TAMSULOSIN HYDROCHLORIDE [Concomitant]
     Active Substance: TAMSULOSIN HYDROCHLORIDE
  25. SUCRALFATE [Concomitant]
     Active Substance: SUCRALFATE
     Route: 048
  26. LUBIPROSTONE [Concomitant]
     Active Substance: LUBIPROSTONE
  27. TESTOSTERONE CYPIONATE [Concomitant]
     Active Substance: TESTOSTERONE CYPIONATE
  28. IPRATROPIUM BROMIDE [Concomitant]
     Active Substance: IPRATROPIUM BROMIDE\IPRATROPIUM BROMIDE ANHYDROUS
  29. BUPROPION [Concomitant]
     Active Substance: BUPROPION
     Dosage: UNK UNK, QD
  30. ATROVENT HFA [Concomitant]
     Active Substance: IPRATROPIUM BROMIDE
  31. MAGNESIUM ELEMENTAL [Concomitant]
  32. EMGALITY [Concomitant]
     Active Substance: GALCANEZUMAB-GNLM
  33. XIFAXAN [Concomitant]
     Active Substance: RIFAXIMIN
  34. VITAMIN D NOS [Concomitant]
     Active Substance: CHOLECALCIFEROL\ERGOCALCIFEROL
  35. VITAMIN D2 [Concomitant]
     Active Substance: ERGOCALCIFEROL
  36. PANTOPRAZOLE SODIUM [Concomitant]
     Active Substance: PANTOPRAZOLE SODIUM

REACTIONS (3)
  - Asthma [Unknown]
  - Product dose omission issue [Unknown]
  - General physical health deterioration [Unknown]
